FAERS Safety Report 25340649 (Version 3)
Quarter: 2025Q3

REPORT INFORMATION
  Report Type: Report from Study
  Country: CA (occurrence: CA)
  Receive Date: 20250521
  Receipt Date: 20250710
  Transmission Date: 20251021
  Serious: Yes (Other)
  Sender: JOHNSON AND JOHNSON
  Company Number: CA-JNJFOC-20250522297

PATIENT
  Age: 15 Year
  Sex: Male
  Weight: 57 kg

DRUGS (4)
  1. REMICADE [Suspect]
     Active Substance: INFLIXIMAB
     Indication: Crohn^s disease
     Route: 041
     Dates: start: 20191205
  2. REMICADE [Suspect]
     Active Substance: INFLIXIMAB
     Dosage: DOSE: 10 MG/KG
     Route: 041
  3. REMICADE [Suspect]
     Active Substance: INFLIXIMAB
     Route: 041
  4. REMICADE [Suspect]
     Active Substance: INFLIXIMAB
     Dosage: DOSE: 10 MG/KG
     Route: 041

REACTIONS (3)
  - Crohn^s disease [Recovering/Resolving]
  - Drug level decreased [Recovering/Resolving]
  - Off label use [Unknown]

NARRATIVE: CASE EVENT DATE: 20250508
